FAERS Safety Report 15431006 (Version 1)
Quarter: 2018Q3

REPORT INFORMATION
  Report Type: Spontaneous
  Country: US (occurrence: US)
  Receive Date: 20180926
  Receipt Date: 20180926
  Transmission Date: 20181010
  Serious: Yes (Death, Other)
  Sender: FDA-Public Use
  Company Number: US-INDIVIOR LIMITED-INDV-111643-2018

PATIENT
  Age: 41 Year
  Sex: Male

DRUGS (1)
  1. SUBOXONE [Suspect]
     Active Substance: BUPRENORPHINE HYDROCHLORIDE\NALOXONE HYDROCHLORIDE
     Indication: DRUG DEPENDENCE
     Dosage: 8 MG, BID
     Route: 065

REACTIONS (3)
  - Toxicity to various agents [Fatal]
  - Overdose [Fatal]
  - Inappropriate schedule of drug administration [Unknown]

NARRATIVE: CASE EVENT DATE: 201802
